FAERS Safety Report 24714271 (Version 1)
Quarter: 2024Q4

REPORT INFORMATION
  Report Type: Spontaneous
  Country: US (occurrence: None)
  Receive Date: 20241206
  Receipt Date: 20241206
  Transmission Date: 20250115
  Serious: Yes (unspecified)
  Sender: Public
  Company Number: None

PATIENT
  Age: 58 Year
  Sex: Female
  Weight: 82.3 kg

DRUGS (2)
  1. PEMGARDA [Suspect]
     Active Substance: PEMIVIBART
  2. PEMIVIBART [Concomitant]
     Active Substance: PEMIVIBART

REACTIONS (3)
  - Pruritus [None]
  - Urticaria [None]
  - Infusion related reaction [None]

NARRATIVE: CASE EVENT DATE: 20241206
